FAERS Safety Report 4549469-2 (Version None)
Quarter: 2005Q1

REPORT INFORMATION
  Report Type: 
  Country: None (occurrence: None)
  Receive Date: 20050106
  Receipt Date: 20041227
  Transmission Date: 20050727
  Serious: No
  Sender: FDA-Public Use
  Company Number: 2004UW26151

PATIENT
  Age: 85 Year
  Sex: Female
  Weight: 50.8029 kg

DRUGS (12)
  1. ARIMIDEX [Suspect]
     Indication: BREAST CANCER
     Dosage: 1 MG QD PO
     Route: 048
     Dates: start: 19971120, end: 20021121
  2. NOLVADEX [Suspect]
     Indication: BREAST CANCER
     Dosage: 20 MG QD PO
     Route: 048
     Dates: start: 19971120, end: 20021121
  3. ALENDRONATE SODIUM [Concomitant]
  4. BETA OPTIC [Concomitant]
  5. DIPHENHYDRAMINE HCL [Concomitant]
  6. VITAMIN D [Concomitant]
  7. VITAMIN E [Concomitant]
  8. CALCIUM CARBONATE [Concomitant]
  9. ASPIRIN [Concomitant]
  10. ACETAMINOPHEN [Concomitant]
  11. SPIRONOLACTONE [Concomitant]
  12. PAROXETINE HCL [Concomitant]

REACTIONS (18)
  - ANIMAL BITE [None]
  - ARTHRALGIA [None]
  - DIZZINESS [None]
  - FALL [None]
  - GENITAL PRURITUS FEMALE [None]
  - INTERVERTEBRAL DISC DEGENERATION [None]
  - INTERVERTEBRAL DISC PROTRUSION [None]
  - LUMBAR SPINAL STENOSIS [None]
  - LUMBAR VERTEBRAL FRACTURE [None]
  - OSTEOPOROSIS [None]
  - PAIN IN EXTREMITY [None]
  - PROCEDURAL SITE REACTION [None]
  - PRURITUS [None]
  - SKIN LACERATION [None]
  - SPINAL COMPRESSION FRACTURE [None]
  - UPPER LIMB FRACTURE [None]
  - URTICARIA [None]
  - VULVOVAGINAL DRYNESS [None]
